FAERS Safety Report 8715873 (Version 2)
Quarter: 2012Q4

REPORT INFORMATION
  Report Type: 
  Country: US (occurrence: US)
  Receive Date: 20120809
  Receipt Date: 20120903
  Transmission Date: 20130627
  Serious: No
  Sender: FDA-Public Use
  Company Number: US-TEVA-351453USA

PATIENT
  Age: 56 Year
  Sex: Male

DRUGS (5)
  1. NUVIGIL [Suspect]
     Route: 048
  2. IMAFINIB [Concomitant]
  3. FUROSEMIDE [Concomitant]
  4. MULTIVITAMIN [Concomitant]
  5. CALCIUM [Concomitant]

REACTIONS (4)
  - Palpitations [Recovered/Resolved]
  - Insomnia [Recovered/Resolved]
  - Restlessness [Recovered/Resolved]
  - Decreased appetite [Recovered/Resolved]
